FAERS Safety Report 5741886-8 (Version None)
Quarter: 2008Q2

REPORT INFORMATION
  Report Type: 
  Country: None (occurrence: None)
  Receive Date: 20080519
  Receipt Date: 20080507
  Transmission Date: 20081010
  Serious: Yes (Hospitalization)
  Sender: FDA-Public Use
  Company Number: DE-JNJFOC-20080304516

PATIENT
  Age: 54 Year
  Sex: Female

DRUGS (5)
  1. TAVANIC [Suspect]
     Indication: PNEUMONIA
     Route: 048
     Dates: start: 20080212, end: 20080213
  2. ASPIRIN [Concomitant]
     Indication: PNEUMONIA
     Route: 048
  3. NEXIUM [Concomitant]
     Indication: GASTRITIS
     Route: 048
  4. METOPROLOL SUCCINATE [Concomitant]
     Indication: HYPERTENSION
     Route: 048
  5. BLOPRESS [Concomitant]
     Indication: HYPERTENSION
     Route: 048

REACTIONS (3)
  - MIGRAINE [None]
  - PSYCHOTIC DISORDER [None]
  - SUICIDAL IDEATION [None]
